FAERS Safety Report 13270737 (Version 1)
Quarter: 2017Q1

REPORT INFORMATION
  Report Type: Spontaneous
  Country: US (occurrence: US)
  Receive Date: 20170225
  Receipt Date: 20170225
  Transmission Date: 20170428
  Serious: No
  Sender: FDA-Public Use
  Company Number: PHHY2017US026992

PATIENT
  Age: 34 Year
  Sex: Female

DRUGS (1)
  1. ATOPICA (ANIMAL HEALTH) [Suspect]
     Active Substance: CYCLOSPORINE
     Indication: PRODUCT USED FOR UNKNOWN INDICATION
     Dosage: UNK
     Route: 048
     Dates: start: 20170220

REACTIONS (3)
  - Eyelid oedema [Recovered/Resolved]
  - Accidental exposure to product [Unknown]
  - Discomfort [Recovered/Resolved]
